FAERS Safety Report 10054986 (Version 2)
Quarter: 2014Q2

REPORT INFORMATION
  Report Type: Spontaneous
  Country: US (occurrence: US)
  Receive Date: 20140402
  Receipt Date: 20140402
  Transmission Date: 20141212
  Serious: Yes (Other)
  Sender: FDA-Public Use
  Company Number: PHHY2014US035820

PATIENT
  Age: 17 Year
  Sex: Male

DRUGS (13)
  1. CLOZAPINE [Suspect]
     Indication: PSYCHOTIC DISORDER
     Dosage: 300 MG, DAILY
  2. CLOZAPINE [Suspect]
     Indication: SCHIZOPHRENIA, PARANOID TYPE
     Dosage: 150 MG, DAILY
  3. CLOZAPINE [Suspect]
     Dosage: 400 MG, DAILY
  4. QUETIAPINE [Suspect]
     Indication: SCHIZOPHRENIA, PARANOID TYPE
  5. ARIPIPRAZOLE [Suspect]
     Indication: SCHIZOPHRENIA, PARANOID TYPE
  6. ZIPRASIDONE [Suspect]
     Indication: SCHIZOPHRENIA, PARANOID TYPE
  7. LOXAPINE [Suspect]
     Indication: SCHIZOPHRENIA, PARANOID TYPE
  8. SERTRALINE [Suspect]
     Indication: ANXIETY
  9. SERTRALINE [Suspect]
     Indication: SCHIZOPHRENIA, PARANOID TYPE
  10. DIVALPROEX SODIUM DR [Suspect]
     Indication: SCHIZOPHRENIA, PARANOID TYPE
  11. RISPERIDONE [Suspect]
     Indication: SCHIZOPHRENIA, PARANOID TYPE
  12. ASENAPINE [Suspect]
     Indication: SCHIZOPHRENIA, PARANOID TYPE
  13. LEVOTHYROXINE [Concomitant]
     Indication: BLOOD THYROID STIMULATING HORMONE INCREASED

REACTIONS (3)
  - Sinus tachycardia [Recovered/Resolved]
  - Drug ineffective [Unknown]
  - Drug effect incomplete [Unknown]
